FAERS Safety Report 8054121-5 (Version None)
Quarter: 2012Q1

REPORT INFORMATION
  Report Type: 
  Country: None (occurrence: None)
  Receive Date: 20120118
  Receipt Date: 20120110
  Transmission Date: 20120608
  Serious: Yes (Other)
  Sender: FDA-Public Use
  Company Number: CA-JNJFOC-20111201899

PATIENT
  Age: 39 Year
  Sex: Male

DRUGS (3)
  1. PREDNISONE [Suspect]
     Indication: CROHN'S DISEASE
     Route: 065
  2. IMURAN [Suspect]
     Indication: CROHN'S DISEASE
     Route: 065
  3. REMICADE [Suspect]
     Indication: CROHN'S DISEASE
     Route: 042

REACTIONS (5)
  - INFUSION RELATED REACTION [None]
  - FATIGUE [None]
  - DIZZINESS [None]
  - VISION BLURRED [None]
  - MUSCULOSKELETAL PAIN [None]
